FAERS Safety Report 4824913-1 (Version None)
Quarter: 2005Q4

REPORT INFORMATION
  Report Type: 
  Country: None (occurrence: None)
  Receive Date: 20051108
  Receipt Date: 20051027
  Transmission Date: 20060501
  Serious: Yes (Hospitalization, Other)
  Sender: FDA-Public Use
  Company Number: 200513620GDS

PATIENT
  Age: 82 Year
  Sex: Female

DRUGS (5)
  1. ASPIRIN [Suspect]
     Dosage: 100 MG, TOTAL DAILY, ORAL
     Route: 048
     Dates: end: 20051007
  2. MONOTARD [Concomitant]
  3. DILATREND [Concomitant]
  4. ZOCOR [Concomitant]
  5. RENITEN MITE RPD [Concomitant]

REACTIONS (7)
  - APHASIA [None]
  - BRAIN CONTUSION [None]
  - CEREBRAL HAEMORRHAGE [None]
  - EXTRADURAL HAEMATOMA [None]
  - FALL [None]
  - LACERATION [None]
  - SPEECH DISORDER [None]
